FAERS Safety Report 20609828 (Version 1)
Quarter: 2022Q1

REPORT INFORMATION
  Report Type: Spontaneous
  Country: SE (occurrence: None)
  Receive Date: 20220318
  Receipt Date: 20220318
  Transmission Date: 20220423
  Serious: Yes (Hospitalization)
  Sender: FDA-Public Use
  Company Number: SE-ROCHE-3045377

PATIENT
  Age: 16 Year
  Sex: Male

DRUGS (1)
  1. AVASTIN [Suspect]
     Active Substance: BEVACIZUMAB
     Indication: Product used for unknown indication
     Route: 065
     Dates: end: 20220127

REACTIONS (10)
  - Parenteral nutrition [Unknown]
  - Hyperglycaemia [Unknown]
  - Blood pressure abnormal [Unknown]
  - Proteinuria [Unknown]
  - Dehydration [Unknown]
  - Haemoglobin increased [Unknown]
  - Blood creatinine increased [Unknown]
  - Fatigue [Unknown]
  - Off label use [Unknown]
  - Blood albumin increased [Unknown]

NARRATIVE: CASE EVENT DATE: 20220226
